FAERS Safety Report 14806225 (Version 1)
Quarter: 2018Q2

REPORT INFORMATION
  Report Type: Spontaneous
  Country: US (occurrence: US)
  Receive Date: 20180425
  Receipt Date: 20180425
  Transmission Date: 20180711
  Serious: No
  Sender: FDA-Public Use
  Company Number: US-UPSHER-SMITH LABORATORIES, LLC-2017USL00277

PATIENT
  Age: 44 Year
  Sex: Female
  Weight: 77.98 kg

DRUGS (4)
  1. LIDOCAINE. [Concomitant]
     Active Substance: LIDOCAINE
     Dosage: WEEKLY TO EVERY OTHER WEEK
  2. MAXALT [Concomitant]
     Active Substance: RIZATRIPTAN BENZOATE
  3. BOTOX [Concomitant]
     Active Substance: ONABOTULINUMTOXINA
  4. QUDEXY XR [Suspect]
     Active Substance: TOPIRAMATE
     Indication: MIGRAINE
     Dosage: 100 MG, 1X/DAY
     Route: 048
     Dates: start: 20171001

REACTIONS (1)
  - Drug ineffective [Not Recovered/Not Resolved]

NARRATIVE: CASE EVENT DATE: 20171001
